FAERS Safety Report 5658415-X (Version None)
Quarter: 2008Q1

REPORT INFORMATION
  Report Type: 
  Country: None (occurrence: None)
  Receive Date: 20080310
  Receipt Date: 20070207
  Transmission Date: 20080703
  Serious: No
  Sender: FDA-Public Use
  Company Number: US-BAYER-200710450BCC

PATIENT
  Age: 64 Year
  Sex: Male
  Weight: 75 kg

DRUGS (4)
  1. ALEVE [Suspect]
     Indication: ARTHRITIS
     Route: 048
     Dates: start: 20070101
  2. TOPROL [Concomitant]
  3. ZOCOR [Concomitant]
  4. ASPIRIN [Concomitant]
     Route: 048

REACTIONS (1)
  - EPISTAXIS [None]
